FAERS Safety Report 23812435 (Version 4)
Quarter: 2024Q2

REPORT INFORMATION
  Report Type: Report from Study
  Country: US (occurrence: US)
  Receive Date: 20240503
  Receipt Date: 20240627
  Transmission Date: 20240715
  Serious: Yes (Hospitalization, Other)
  Sender: FDA-Public Use
  Company Number: US-BoehringerIngelheim-2023-BI-255662

PATIENT
  Age: 88 Year
  Sex: Female

DRUGS (2)
  1. OFEV [Suspect]
     Active Substance: NINTEDANIB
     Indication: Idiopathic pulmonary fibrosis
     Dosage: LOT #: 300318
     Route: 048
     Dates: start: 20230724, end: 20240410
  2. OFEV [Suspect]
     Active Substance: NINTEDANIB
     Indication: Interstitial lung disease
     Route: 048
     Dates: start: 20240603

REACTIONS (30)
  - Fall [Recovered/Resolved]
  - Bladder obstruction [Recovered/Resolved]
  - Transaminases increased [Unknown]
  - Blood lactic acid increased [Unknown]
  - Blood lactate dehydrogenase increased [Unknown]
  - Jaundice [Unknown]
  - Urinary tract infection bacterial [Recovered/Resolved]
  - Urosepsis [Not Recovered/Not Resolved]
  - Myalgia [Not Recovered/Not Resolved]
  - Productive cough [Not Recovered/Not Resolved]
  - Abdominal discomfort [Not Recovered/Not Resolved]
  - Erythema of eyelid [Recovered/Resolved]
  - Eye haemorrhage [Not Recovered/Not Resolved]
  - Eye contusion [Not Recovered/Not Resolved]
  - Diarrhoea [Not Recovered/Not Resolved]
  - Fatigue [Unknown]
  - Confusional state [Recovered/Resolved]
  - Blood test abnormal [Recovered/Resolved]
  - Gallbladder obstruction [Recovered/Resolved]
  - Cholelithiasis [Recovered/Resolved]
  - Syncope [Unknown]
  - Dizziness [Not Recovered/Not Resolved]
  - Suspected COVID-19 [Unknown]
  - Nasopharyngitis [Recovering/Resolving]
  - Headache [Unknown]
  - Discomfort [Unknown]
  - Swelling [Unknown]
  - Nausea [Not Recovered/Not Resolved]
  - Abdominal pain upper [Unknown]
  - Illness [Unknown]

NARRATIVE: CASE EVENT DATE: 20230802
